FAERS Safety Report 13093301 (Version 1)
Quarter: 2017Q1

REPORT INFORMATION
  Report Type: Spontaneous
  Country: DE (occurrence: DE)
  Receive Date: 20170106
  Receipt Date: 20170106
  Transmission Date: 20170428
  Serious: Yes (Other)
  Sender: FDA-Public Use
  Company Number: DE-BAYER-2017-001498

PATIENT
  Age: 34 Year
  Sex: Female

DRUGS (1)
  1. JAYDESS [Suspect]
     Active Substance: LEVONORGESTREL
     Dosage: 14 MCG/24HR, CONT
     Route: 015
     Dates: start: 20150430, end: 201612

REACTIONS (4)
  - Genital haemorrhage [None]
  - Uterine haemorrhage [None]
  - Amenorrhoea [None]
  - Abortion infected [None]

NARRATIVE: CASE EVENT DATE: 2015
